FAERS Safety Report 15607278 (Version 2)
Quarter: 2021Q3

REPORT INFORMATION
  Report Type: Report from Study
  Country: None (occurrence: CA)
  Receive Date: 20181112
  Receipt Date: 20210803
  Transmission Date: 20211014
  Serious: Yes (Other)
  Sender: FDA-Public Use
  Company Number: CA-ABBVIE-18K-028-2550041-00

PATIENT
  Age: 55 Year
  Sex: Female

DRUGS (1)
  1. HUMIRA [Suspect]
     Active Substance: ADALIMUMAB
     Indication: CROHN^S DISEASE
     Route: 058
     Dates: start: 20100514

REACTIONS (5)
  - Diarrhoea [Unknown]
  - Humerus fracture [Unknown]
  - Road traffic accident [Recovered/Resolved]
  - Pain [Unknown]
  - Joint dislocation [Unknown]

NARRATIVE: CASE EVENT DATE: 20181102
